FAERS Safety Report 24208954 (Version 1)
Quarter: 2024Q3

REPORT INFORMATION
  Report Type: Spontaneous
  Country: PT (occurrence: PT)
  Receive Date: 20240814
  Receipt Date: 20240814
  Transmission Date: 20241016
  Serious: Yes (Death, Hospitalization)
  Sender: STRIDES
  Company Number: PT-STRIDES ARCOLAB LIMITED-2024SP010111

PATIENT
  Age: 45 Year
  Sex: Female

DRUGS (2)
  1. ACYCLOVIR [Suspect]
     Active Substance: ACYCLOVIR
     Indication: Herpes virus infection
     Dosage: UNK
     Route: 065
  2. VANCOMYCIN [Suspect]
     Active Substance: VANCOMYCIN
     Indication: Herpes virus infection
     Dosage: UNK
     Route: 065

REACTIONS (3)
  - Drug ineffective [Fatal]
  - Condition aggravated [Fatal]
  - Off label use [Unknown]
